FAERS Safety Report 7364859-0 (Version None)
Quarter: 2011Q1

REPORT INFORMATION
  Report Type: 
  Country: None (occurrence: None)
  Receive Date: 20110321
  Receipt Date: 20110223
  Transmission Date: 20110831
  Serious: No
  Sender: FDA-Public Use
  Company Number: US-B.I. PHARMACEUTICALS,INC./RIDGEFIELD-2011-BP-06857BP

PATIENT
  Age: 85 Year
  Sex: Female

DRUGS (2)
  1. MULTAQ [Suspect]
     Dates: start: 20110201, end: 20110222
  2. PRADAXA [Suspect]
     Dosage: 300 MG
     Route: 048
     Dates: start: 20110201

REACTIONS (7)
  - DIARRHOEA [None]
  - NECK PAIN [None]
  - DYSPNOEA [None]
  - MELAENA [None]
  - NERVOUSNESS [None]
  - DIZZINESS [None]
  - FATIGUE [None]
